FAERS Safety Report 14221532 (Version 1)
Quarter: 2017Q4

REPORT INFORMATION
  Report Type: Spontaneous
  Country: JP (occurrence: JP)
  Receive Date: 20171124
  Receipt Date: 20171124
  Transmission Date: 20180321
  Serious: Yes (Other)
  Sender: FDA-Public Use
  Company Number: JP-PFIZER INC-2017502896

PATIENT

DRUGS (2)
  1. RHEUMATREX [Suspect]
     Active Substance: METHOTREXATE SODIUM
     Indication: RHEUMATIC DISORDER
     Dosage: UNK
     Route: 048
  2. CARERAM [Concomitant]
     Active Substance: IGURATIMOD
     Indication: RHEUMATIC DISORDER
     Dosage: UNK
     Route: 048

REACTIONS (1)
  - Ventricular fibrillation [Unknown]
